FAERS Safety Report 6453357-4 (Version None)
Quarter: 2009Q4

REPORT INFORMATION
  Report Type: 
  Country: None (occurrence: None)
  Receive Date: 20091123
  Receipt Date: 20091123
  Transmission Date: 20100525
  Serious: Yes (Life-Threatening)
  Sender: FDA-Public Use
  Company Number: None

PATIENT
  Age: 50 Year
  Sex: Male
  Weight: 86.1834 kg

DRUGS (1)
  1. PRAVASTATIN [Suspect]
     Indication: BLOOD CHOLESTEROL INCREASED
     Dosage: 80MG ONCE DAILY PO
     Route: 048
     Dates: start: 20091005, end: 20091120

REACTIONS (3)
  - CHOKING [None]
  - FOREIGN BODY [None]
  - PRODUCT QUALITY ISSUE [None]
